FAERS Safety Report 7978084-3 (Version None)
Quarter: 2011Q4

REPORT INFORMATION
  Report Type: 
  Country: None (occurrence: None)
  Receive Date: 20111214
  Receipt Date: 20111203
  Transmission Date: 20120403
  Serious: Yes (Other)
  Sender: FDA-Public Use
  Company Number: KR-PAR PHARMACEUTICAL, INC-2011SCPR003474

PATIENT

DRUGS (3)
  1. HYDROCHLOROTHIAZIDE [Suspect]
     Indication: WEIGHT DECREASED
     Dosage: UNK, UNKNOWN
     Route: 065
  2. MAGNESIUM HYDROXIDE TAB [Suspect]
     Indication: WEIGHT DECREASED
     Dosage: UNK, UNKNOWN
     Route: 065
  3. FLUOXETINE [Suspect]
     Indication: WEIGHT DECREASED
     Dosage: UNK, UNKNOWN
     Route: 065

REACTIONS (2)
  - CHOROIDAL EFFUSION [None]
  - MYOPIA [None]
